FAERS Safety Report 5515382-7 (Version None)
Quarter: 2007Q4

REPORT INFORMATION
  Report Type: 
  Country: None (occurrence: None)
  Receive Date: 20071109
  Receipt Date: 20071026
  Transmission Date: 20080405
  Serious: Yes (Other)
  Sender: FDA-Public Use
  Company Number: 163365ISR

PATIENT
  Age: 36 Year
  Sex: Male

DRUGS (2)
  1. PREDNISOLONE [Suspect]
     Indication: UVEITIS
     Dosage: 12.5 MG (12.5 MG,1 IN 1 D)
  2. CYCLOSPORINE [Suspect]
     Indication: UVEITIS
     Dosage: 150 MG (150 MG,1 IN 1 D)

REACTIONS (12)
  - ABDOMINAL PAIN [None]
  - BODY TEMPERATURE INCREASED [None]
  - DIARRHOEA [None]
  - DISEASE PROGRESSION [None]
  - EYE INFLAMMATION [None]
  - GASTROENTERITIS [None]
  - UVEITIS [None]
  - VISION BLURRED [None]
  - VISUAL ACUITY REDUCED [None]
  - VITREOUS DISORDER [None]
  - VITREOUS FLOATERS [None]
  - VOMITING [None]
